FAERS Safety Report 18176940 (Version 3)
Quarter: 2020Q4

REPORT INFORMATION
  Report Type: Spontaneous
  Country: US (occurrence: US)
  Receive Date: 20200820
  Receipt Date: 20201022
  Transmission Date: 20210113
  Serious: Yes (Hospitalization, Other)
  Sender: FDA-Public Use
  Company Number: US-GILEAD-2020-0489895

PATIENT
  Age: 50 Year
  Sex: Female
  Weight: 70.75 kg

DRUGS (18)
  1. SUSTIVA [Concomitant]
     Active Substance: EFAVIRENZ
  2. TRAZODONE [Concomitant]
     Active Substance: TRAZODONE HYDROCHLORIDE
  3. TRIUMEQ [Concomitant]
     Active Substance: ABACAVIR SULFATE\DOLUTEGRAVIR SODIUM\LAMIVUDINE
  4. PLAVIX [Concomitant]
     Active Substance: CLOPIDOGREL BISULFATE
  5. EPZICOM [Concomitant]
     Active Substance: ABACAVIR SULFATE\LAMIVUDINE
  6. CETIRIZINE [Concomitant]
     Active Substance: CETIRIZINE HYDROCHLORIDE
  7. ZIAGEN [Concomitant]
     Active Substance: ABACAVIR SULFATE
  8. BACLOFEN. [Concomitant]
     Active Substance: BACLOFEN
  9. DIVALPROEX [Concomitant]
     Active Substance: DIVALPROEX SODIUM
  10. VIREAD [Suspect]
     Active Substance: TENOFOVIR DISOPROXIL FUMARATE
     Indication: HIV INFECTION
     Dosage: UNK
     Route: 048
     Dates: start: 201008, end: 201410
  11. EMTRIVA [Concomitant]
     Active Substance: EMTRICITABINE
  12. LURASIDONE [Concomitant]
     Active Substance: LURASIDONE
  13. VITAMIN D [VITAMIN D NOS] [Concomitant]
     Active Substance: VITAMIN D NOS
  14. TYLENOL [Concomitant]
     Active Substance: ACETAMINOPHEN
  15. LACTOBACILLUS NOS [Concomitant]
     Active Substance: LACTOBACILLUS ACIDOPHILUS
  16. ATORVASTATIN [Concomitant]
     Active Substance: ATORVASTATIN
  17. ATRIPLA [Suspect]
     Active Substance: EFAVIRENZ\EMTRICITABINE\TENOFOVIR DISOPROXIL FUMARATE
     Indication: HIV INFECTION
     Dosage: UNK
     Route: 048
     Dates: start: 20100622, end: 201007
  18. CALCIUM [Concomitant]
     Active Substance: CALCIUM

REACTIONS (10)
  - Product use complaint [Unknown]
  - Chronic kidney disease [Not Recovered/Not Resolved]
  - Acute kidney injury [Recovered/Resolved]
  - Bone density abnormal [Unknown]
  - Emotional distress [Not Recovered/Not Resolved]
  - Anxiety [Not Recovered/Not Resolved]
  - Anhedonia [Not Recovered/Not Resolved]
  - Osteopenia [Not Recovered/Not Resolved]
  - Wrist fracture [Recovered/Resolved]
  - Pain [Not Recovered/Not Resolved]

NARRATIVE: CASE EVENT DATE: 201411
